FAERS Safety Report 6085060-7 (Version None)
Quarter: 2009Q1

REPORT INFORMATION
  Report Type: 
  Country: None (occurrence: None)
  Receive Date: 20090220
  Receipt Date: 20090120
  Transmission Date: 20090719
  Serious: No
  Sender: FDA-Public Use
  Company Number: US-BAYER-200911369NA

PATIENT
  Age: 19 Year
  Sex: Female
  Weight: 51 kg

DRUGS (1)
  1. YAZ [Suspect]
     Indication: DYSMENORRHOEA
     Route: 048
     Dates: start: 20081001

REACTIONS (2)
  - ACNE [None]
  - NO ADVERSE EVENT [None]
